FAERS Safety Report 10008645 (Version 1)
Quarter: 2014Q1

REPORT INFORMATION
  Report Type: Spontaneous
  Country: US (occurrence: US)
  Receive Date: 20140312
  Receipt Date: 20140312
  Transmission Date: 20141002
  Serious: No
  Sender: FDA-Public Use
  Company Number: US-INCYTE CORPORATION-2012IN000216

PATIENT
  Age: 71 Year
  Sex: Male

DRUGS (8)
  1. JAKAFI [Suspect]
     Indication: MYELOFIBROSIS
     Dosage: 10 MG, BID
     Route: 048
     Dates: start: 201201
  2. JAKAFI [Suspect]
     Dosage: 10 MG, QD
     Route: 048
  3. JAKAFI [Suspect]
     Dosage: 10 MG, BID
     Route: 048
  4. ALLOPURINOL [Concomitant]
     Dosage: 100 MG, QD
     Route: 048
  5. FUROSEMIDE [Concomitant]
     Dosage: 20 MG, QD
     Route: 048
  6. PANTOPRAZOLE [Concomitant]
     Dosage: 40 MG, BID
     Route: 048
  7. NAPROXEN [Concomitant]
     Dosage: 500 MG, BID
     Route: 048
  8. MAALOX [Concomitant]
     Dosage: UNK, QD PM

REACTIONS (1)
  - Blood potassium increased [Unknown]
